FAERS Safety Report 5735962-3 (Version None)
Quarter: 2008Q2

REPORT INFORMATION
  Report Type: 
  Country: None (occurrence: None)
  Receive Date: 20080513
  Receipt Date: 20080506
  Transmission Date: 20081010
  Serious: Yes (Other)
  Sender: FDA-Public Use
  Company Number: IT-TEVA-171303ISR

PATIENT
  Sex: Female

DRUGS (2)
  1. FLUOROURACIL [Suspect]
     Indication: COLON CANCER
     Route: 042
     Dates: start: 20080421, end: 20080422
  2. FOLINIC ACID [Suspect]
     Indication: COLON CANCER
     Route: 042
     Dates: start: 20080421, end: 20080422

REACTIONS (3)
  - HYPERHIDROSIS [None]
  - LOSS OF CONSCIOUSNESS [None]
  - VERTIGO [None]
